FAERS Safety Report 7671874-6 (Version None)
Quarter: 2011Q3

REPORT INFORMATION
  Report Type: 
  Country: None (occurrence: None)
  Receive Date: 20110809
  Receipt Date: 20110804
  Transmission Date: 20111222
  Serious: No
  Sender: FDA-Public Use
  Company Number: US-ROXANE LABORATORIES, INC.-2011-RO-01109RO

PATIENT
  Sex: Male

DRUGS (6)
  1. TRIAMTERENE AND HYDROCHLOROTHIAZIDE [Concomitant]
  2. POTASSIUM CHLORIDE [Concomitant]
     Dosage: 50 MEQ
  3. PERINDOPRIL ERBUMINE [Suspect]
     Indication: HYPERTENSION
     Dosage: 6 MG
     Route: 048
     Dates: start: 20110522, end: 20110608
  4. AMLODIPINE [Concomitant]
     Dosage: 10 MG
  5. PERINDOPRIL ERBUMINE [Suspect]
     Dosage: 6 MG
     Route: 048
     Dates: start: 20110802, end: 20110804
  6. METFORMIN HCL [Concomitant]
     Dosage: 1000 MG

REACTIONS (3)
  - DRUG INEFFECTIVE [None]
  - INITIAL INSOMNIA [None]
  - OEDEMA PERIPHERAL [None]
